FAERS Safety Report 6169029-X (Version None)
Quarter: 2009Q2

REPORT INFORMATION
  Report Type: 
  Country: None (occurrence: None)
  Receive Date: 20090424
  Receipt Date: 20090424
  Transmission Date: 20091009
  Serious: Yes (Life-Threatening, Other)
  Sender: FDA-Public Use
  Company Number: None

PATIENT
  Age: 72 Year
  Sex: Female
  Weight: 60.6 kg

DRUGS (1)
  1. PENTAMIDINE ISETHIONATE [Suspect]
     Indication: PNEUMOCYSTIS JIROVECI INFECTION
     Dosage: 300MG XL OTHER
     Route: 050
     Dates: start: 20090422, end: 20090422

REACTIONS (2)
  - BRONCHOSPASM [None]
  - RESPIRATORY FAILURE [None]
